FAERS Safety Report 5133578-3 (Version None)
Quarter: 2006Q4

REPORT INFORMATION
  Report Type: 
  Country: None (occurrence: None)
  Receive Date: 20061024
  Receipt Date: 20060411
  Transmission Date: 20070319
  Serious: Yes (Hospitalization)
  Sender: FDA-Public Use
  Company Number: US-BAYER-200612303BWH

PATIENT
  Sex: Female

DRUGS (1)
  1. NEXAVAR [Suspect]
     Indication: METASTATIC RENAL CELL CARCINOMA
     Dosage: TOTAL DAILY DOSE: 800 MG  UNIT DOSE: 200 MG
     Route: 048

REACTIONS (2)
  - IMPLANT SITE REACTION [None]
  - PERITONEAL PERFORATION [None]
